FAERS Safety Report 18998472 (Version 1)
Quarter: 2021Q1

REPORT INFORMATION
  Report Type: Spontaneous
  Country: US (occurrence: US)
  Receive Date: 20210311
  Receipt Date: 20210311
  Transmission Date: 20210420
  Serious: Yes (Disabling, Other)
  Sender: FDA-Public Use
  Company Number: US-PURDUE-USA-2020-0220401

PATIENT
  Sex: Female

DRUGS (1)
  1. OXYCONTIN [Suspect]
     Active Substance: OXYCODONE HYDROCHLORIDE
     Indication: PAIN
     Dosage: 30 MG, UNK FREQUENCY
     Route: 048

REACTIONS (8)
  - Pain [Unknown]
  - Emotional distress [Unknown]
  - Injury [Unknown]
  - Disability [Unknown]
  - Mental disorder [Unknown]
  - Social avoidant behaviour [Unknown]
  - Drug withdrawal syndrome [Unknown]
  - Drug dependence [Unknown]
